FAERS Safety Report 13753136 (Version 1)
Quarter: 2017Q3

REPORT INFORMATION
  Report Type: Spontaneous
  Country: US (occurrence: US)
  Receive Date: 20170713
  Receipt Date: 20170713
  Transmission Date: 20171127
  Serious: No
  Sender: FDA-Public Use
  Company Number: US-TAIHO ONCOLOGY INC-EU-2016-01859

PATIENT
  Sex: Female
  Weight: 70.37 kg

DRUGS (6)
  1. LONSURF [Suspect]
     Active Substance: TIPIRACIL HYDROCHLORIDE\TRIFLURIDINE
     Indication: COLON CANCER STAGE IV
     Dosage: DOSAGE REGIMEN UNKNOWN
     Route: 048
     Dates: start: 2015
  2. CELEXA [Concomitant]
     Active Substance: CITALOPRAM HYDROBROMIDE
     Route: 048
  3. NEURONTIN [Concomitant]
     Active Substance: GABAPENTIN
     Route: 048
  4. LOMOTIL [Concomitant]
     Active Substance: ATROPINE SULFATE\DIPHENOXYLATE HYDROCHLORIDE
     Indication: DIARRHOEA
     Dosage: AS NEEDED
     Route: 048
  5. TUMS [Concomitant]
     Active Substance: CALCIUM CARBONATE
     Dosage: CHEW DAILY
  6. COLECALCIFEROL [Concomitant]
     Active Substance: CHOLECALCIFEROL
     Route: 048

REACTIONS (1)
  - Disease progression [Not Recovered/Not Resolved]

NARRATIVE: CASE EVENT DATE: 2016
